FAERS Safety Report 16346528 (Version 10)
Quarter: 2021Q3

REPORT INFORMATION
  Report Type: Spontaneous
  Country: DE (occurrence: DE)
  Receive Date: 20190523
  Receipt Date: 20210907
  Transmission Date: 20211014
  Serious: Yes (Hospitalization, Other)
  Sender: FDA-Public Use
  Company Number: PHHY2019DE114978

PATIENT
  Age: 49 Year
  Sex: Female
  Weight: 78 kg

DRUGS (24)
  1. ATORVASTATIN [Suspect]
     Active Substance: ATORVASTATIN
     Indication: BLOOD CHOLESTEROL INCREASED
     Dosage: 20MG
     Route: 065
     Dates: end: 20190530
  2. SALBUTAMOL [Concomitant]
     Active Substance: ALBUTEROL
     Indication: PRODUCT USED FOR UNKNOWN INDICATION
     Dosage: UNK
     Route: 065
  3. LEVETIRACETAM. [Concomitant]
     Active Substance: LEVETIRACETAM
     Indication: EPILEPSY
     Dosage: 1000 MG, BID
     Route: 048
     Dates: start: 2017
  4. VIANI [Concomitant]
     Active Substance: FLUTICASONE PROPIONATE\SALMETEROL XINAFOATE
     Indication: ASTHMA
     Dosage: 550 UG, BID
     Route: 065
     Dates: start: 2011
  5. OCRELIZUMAB. [Suspect]
     Active Substance: OCRELIZUMAB
     Dosage: 600 MG, QD
     Route: 042
     Dates: start: 20190220
  6. SODIUM CHLORIDE. [Concomitant]
     Active Substance: SODIUM CHLORIDE
     Indication: PRODUCT USED FOR UNKNOWN INDICATION
     Dosage: 100ML
     Route: 065
  7. VIANI [Concomitant]
     Active Substance: FLUTICASONE PROPIONATE\SALMETEROL XINAFOATE
     Dosage: 550 UG,0.5
     Route: 065
     Dates: start: 2011
  8. THYRONAJOD [Concomitant]
     Active Substance: LEVOTHYROXINE SODIUM\POTASSIUM IODIDE
     Indication: HYPOTHYROIDISM
     Dosage: 100 UG,QD
     Route: 048
     Dates: start: 2011
  9. APYDAN [Concomitant]
     Indication: PRODUCT USED FOR UNKNOWN INDICATION
     Dosage: 600 MG, BID
     Route: 048
     Dates: start: 20200724
  10. LEVETIRACETAM. [Concomitant]
     Active Substance: LEVETIRACETAM
     Dosage: 1000 MG,0.5
     Route: 048
     Dates: start: 2017
  11. PANTOPRAZOLE [Concomitant]
     Active Substance: PANTOPRAZOLE
     Dosage: 20 MG
     Route: 065
  12. VIANI [Concomitant]
     Active Substance: FLUTICASONE PROPIONATE\SALMETEROL XINAFOATE
     Dosage: 1 DF,0.5
     Route: 065
     Dates: start: 2011
  13. IBUPROFEN. [Concomitant]
     Active Substance: IBUPROFEN
     Indication: PRODUCT USED FOR UNKNOWN INDICATION
     Dosage: 400MG (AS REQUIRED)
     Route: 048
  14. METFORMIN HYDROCHLORIDE. [Suspect]
     Active Substance: METFORMIN HYDROCHLORIDE
     Indication: PRODUCT USED FOR UNKNOWN INDICATION
     Dosage: 1000 MG, BID
     Route: 065
     Dates: start: 20190422
  15. METFORMIN HYDROCHLORIDE. [Suspect]
     Active Substance: METFORMIN HYDROCHLORIDE
     Dosage: 500 MG, BID
     Route: 065
     Dates: start: 20190423
  16. OCRELIZUMAB. [Suspect]
     Active Substance: OCRELIZUMAB
     Indication: RELAPSING-REMITTING MULTIPLE SCLEROSIS
     Dosage: 300 MG, QD
     Route: 042
     Dates: start: 20180808
  17. SIMVASTATIN. [Concomitant]
     Active Substance: SIMVASTATIN
     Indication: PRODUCT USED FOR UNKNOWN INDICATION
     Dosage: 20 MG,QD
     Route: 065
     Dates: start: 20190823
  18. VIANI [Concomitant]
     Active Substance: FLUTICASONE PROPIONATE\SALMETEROL XINAFOATE
     Dosage: 1 DF
     Route: 065
  19. TAVEGIL [Concomitant]
     Active Substance: CLEMASTINE FUMARATE
     Indication: PREMEDICATION
     Dosage: UNK
     Route: 042
  20. ROSUVASTATIN. [Concomitant]
     Active Substance: ROSUVASTATIN
     Indication: PRODUCT USED FOR UNKNOWN INDICATION
     Dosage: UNK, QD
     Route: 065
  21. OCRELIZUMAB. [Suspect]
     Active Substance: OCRELIZUMAB
     Dosage: 300 MG, QD
     Route: 042
     Dates: start: 20180822
  22. OCRELIZUMAB. [Suspect]
     Active Substance: OCRELIZUMAB
     Dosage: 600 MG, QD
     Route: 042
     Dates: start: 20200813
  23. VIANI [Concomitant]
     Active Substance: FLUTICASONE PROPIONATE\SALMETEROL XINAFOATE
     Dosage: 1 DF, BID
     Route: 065
  24. PANTOPRAZOLE [Concomitant]
     Active Substance: PANTOPRAZOLE
     Indication: GASTROOESOPHAGEAL REFLUX DISEASE
     Dosage: 20 MG, QD
     Route: 048
     Dates: start: 2011

REACTIONS (28)
  - Back pain [Not Recovered/Not Resolved]
  - Injection site swelling [Recovered/Resolved]
  - Interleukin level increased [Unknown]
  - Paraesthesia [Recovered/Resolved]
  - Chills [Recovered/Resolved]
  - Blood glucose increased [Recovered/Resolved]
  - Basal cell carcinoma [Recovered/Resolved]
  - Multiple sclerosis relapse [Recovered/Resolved]
  - Arthralgia [Recovered/Resolved]
  - Headache [Recovered/Resolved]
  - Fatigue [Recovered/Resolved]
  - Myalgia [Recovered/Resolved]
  - Cardiovascular disorder [Recovered/Resolved]
  - Epistaxis [Recovered/Resolved]
  - Blood cholesterol increased [Recovered/Resolved]
  - Aortic disorder [Recovered/Resolved]
  - B-lymphocyte count decreased [Recovered/Resolved]
  - Herpes zoster [Recovered/Resolved]
  - Muscular weakness [Not Recovered/Not Resolved]
  - Type 2 diabetes mellitus [Unknown]
  - Bronchitis [Recovered/Resolved]
  - Pain in extremity [Recovered/Resolved]
  - Intervertebral disc protrusion [Recovering/Resolving]
  - Product administration error [Unknown]
  - Nasopharyngitis [Recovering/Resolving]
  - Lymph node pain [Recovered/Resolved]
  - Uhthoff^s phenomenon [Recovered/Resolved]
  - Diarrhoea [Recovered/Resolved]

NARRATIVE: CASE EVENT DATE: 20180822
